FAERS Safety Report 17841070 (Version 1)
Quarter: 2020Q2

REPORT INFORMATION
  Report Type: Spontaneous
  Country: US (occurrence: US)
  Receive Date: 20200529
  Receipt Date: 20200529
  Transmission Date: 20200714
  Serious: No
  Sender: FDA-Public Use
  Company Number: US-PFIZER INC-2020211008

PATIENT
  Age: 69 Year
  Sex: Male

DRUGS (1)
  1. INLYTA [Suspect]
     Active Substance: AXITINIB
     Dosage: UNK (AT 10AM AND 10PM, KNOCK OFF 1 PILL EVERY 10 DAYS)

REACTIONS (7)
  - Mouth ulceration [Unknown]
  - Blood pressure increased [Unknown]
  - Back pain [Unknown]
  - Nausea [Unknown]
  - Oral infection [Unknown]
  - Diarrhoea [Unknown]
  - Pain in extremity [Unknown]
